FAERS Safety Report 10672282 (Version 1)
Quarter: 2014Q4

REPORT INFORMATION
  Report Type: Spontaneous
  Country: US (occurrence: None)
  Receive Date: 20141222
  Receipt Date: 20141222
  Transmission Date: 20150529
  Serious: No
  Sender: FDA-Public Use
  Company Number: None

PATIENT
  Age: 67 Year
  Sex: Female
  Weight: 56.7 kg

DRUGS (2)
  1. CANASA [Suspect]
     Active Substance: MESALAMINE
     Indication: COLITIS
     Dosage: 1 SUPPOSITORY, ONCE DAILY, RECTAL
     Route: 054
     Dates: start: 20141209, end: 20141211
  2. MESALAMINE. [Suspect]
     Active Substance: MESALAMINE
     Indication: COLITIS
     Dosage: 1 PILL, THREE TIMES DAILY, TAKEN BY MOUTH
     Route: 048
     Dates: start: 20141206, end: 20141208

REACTIONS (5)
  - Asthenia [None]
  - Lethargy [None]
  - Haematochezia [None]
  - Abdominal pain [None]
  - Vomiting [None]

NARRATIVE: CASE EVENT DATE: 20141208
